FAERS Safety Report 7465452-1 (Version None)
Quarter: 2011Q2

REPORT INFORMATION
  Report Type: 
  Country: None (occurrence: None)
  Receive Date: 20110509
  Receipt Date: 20110503
  Transmission Date: 20111010
  Serious: Yes (Death, Life-Threatening)
  Sender: FDA-Public Use
  Company Number: DE-ASTRAZENECA-2011SE25492

PATIENT
  Age: 99 Year
  Sex: Female

DRUGS (13)
  1. DIAZEPAM [Concomitant]
     Route: 048
     Dates: start: 20091029, end: 20091029
  2. DIAZEPAM [Concomitant]
     Route: 048
     Dates: start: 20091030, end: 20091030
  3. ASPIRIN [Concomitant]
     Route: 048
  4. LISINOPRIL [Suspect]
     Route: 048
  5. DIPIPERON [Suspect]
     Route: 048
  6. METOPROLOL SUCCINATE [Interacting]
     Route: 048
  7. LASIX [Suspect]
     Route: 048
  8. DIAZEPAM [Concomitant]
     Route: 048
     Dates: start: 20091031
  9. DIAZEPAM [Concomitant]
     Route: 048
     Dates: start: 20091019, end: 20091020
  10. DIAZEPAM [Concomitant]
     Route: 048
     Dates: start: 20091021, end: 20091028
  11. HALDOL [Interacting]
     Route: 048
     Dates: start: 20091005, end: 20091028
  12. HALDOL [Interacting]
     Route: 048
     Dates: start: 20091029, end: 20091102
  13. STILNOX [Concomitant]
     Route: 048

REACTIONS (2)
  - DRUG INTERACTION [None]
  - DEATH [None]
